FAERS Safety Report 15690308 (Version 3)
Quarter: 2019Q1

REPORT INFORMATION
  Report Type: Spontaneous
  Country: TR (occurrence: TR)
  Receive Date: 20181205
  Receipt Date: 20190319
  Transmission Date: 20190417
  Serious: Yes (Hospitalization)
  Sender: FDA-Public Use
  Company Number: TR-SA-2018SA328135

PATIENT
  Age: 21 Year
  Sex: Female

DRUGS (1)
  1. TOUJEO [Suspect]
     Active Substance: INSULIN GLARGINE
     Indication: TYPE 1 DIABETES MELLITUS
     Dosage: 12 U, UNK
     Route: 058

REACTIONS (1)
  - Ketoacidosis [Recovered/Resolved]
